FAERS Safety Report 8130417-3 (Version None)
Quarter: 2012Q1

REPORT INFORMATION
  Report Type: 
  Country: None (occurrence: None)
  Receive Date: 20120210
  Receipt Date: 20120203
  Transmission Date: 20120608
  Serious: Yes (Other)
  Sender: FDA-Public Use
  Company Number: US-US-EMD SERONO, INC.-7111311

PATIENT
  Sex: Female
  Weight: 70 kg

DRUGS (4)
  1. VITAMIN B-12 [Concomitant]
  2. VITAMIN D [Concomitant]
     Indication: PRODUCT USED FOR UNKNOWN INDICATION
  3. REBIF [Suspect]
     Indication: PRODUCT USED FOR UNKNOWN INDICATION
     Route: 058
     Dates: start: 20040202
  4. CARVEDILOL [Concomitant]
     Indication: HYPERTENSION

REACTIONS (3)
  - PNEUMONIA [None]
  - HYPERTENSION [None]
  - INJECTION SITE ERYTHEMA [None]
